FAERS Safety Report 5281597-9 (Version None)
Quarter: 2007Q1

REPORT INFORMATION
  Report Type: 
  Country: None (occurrence: None)
  Receive Date: 20070330
  Receipt Date: 20070319
  Transmission Date: 20070707
  Serious: Yes (Other)
  Sender: FDA-Public Use
  Company Number: PHBS2007BR05228

PATIENT
  Age: 64 Year
  Sex: Female

DRUGS (4)
  1. HERCEPTIN [Concomitant]
  2. TAMOXIFEN CITRATE [Concomitant]
  3. PACLITAXEL [Concomitant]
  4. ZOMETA [Suspect]
     Indication: BREAST CANCER
     Dosage: 4 MG/MONTH
     Route: 042

REACTIONS (5)
  - BONE DISORDER [None]
  - IMPAIRED HEALING [None]
  - MANDIBULECTOMY [None]
  - OSTEONECROSIS [None]
  - SURGERY [None]
